FAERS Safety Report 9077030 (Version 1)
Quarter: 2013Q1

REPORT INFORMATION
  Report Type: Report from Study
  Country: US (occurrence: US)
  Receive Date: 20130129
  Receipt Date: 20130129
  Transmission Date: 20140127
  Serious: No
  Sender: FDA-Public Use
  Company Number: US-ABBOTT-12P-163-0940808-00

PATIENT
  Age: 44 None
  Sex: Female
  Weight: 51.3 kg

DRUGS (2)
  1. HUMIRA 40 MG/0.8 ML PEN [Suspect]
     Indication: CROHN^S DISEASE
     Dates: start: 20120525, end: 20120525
  2. HUMIRA 40 MG/0.8 ML PEN [Suspect]
     Dates: start: 20120526, end: 20120526

REACTIONS (12)
  - Myalgia [Recovered/Resolved]
  - Arthralgia [Recovered/Resolved]
  - Blood pressure increased [Recovered/Resolved]
  - Tachycardia [Recovered/Resolved]
  - Influenza like illness [Recovered/Resolved]
  - Sensation of heaviness [Recovering/Resolving]
  - Sensation of heaviness [Recovering/Resolving]
  - Nausea [Not Recovered/Not Resolved]
  - Fatigue [Not Recovered/Not Resolved]
  - Lung hyperinflation [Unknown]
  - Blood potassium decreased [Unknown]
  - Blood urea decreased [Unknown]
